FAERS Safety Report 17425222 (Version 3)
Quarter: 2020Q4

REPORT INFORMATION
  Report Type: Spontaneous
  Country: None (occurrence: FR)
  Receive Date: 20200217
  Receipt Date: 20201120
  Transmission Date: 20210113
  Serious: Yes (Other)
  Sender: FDA-Public Use
  Company Number: FR-SA-2020SA035346

PATIENT

DRUGS (7)
  1. PANTOPRAZOLE [Concomitant]
     Active Substance: PANTOPRAZOLE
     Indication: GASTROINTESTINAL DISORDER
     Dosage: UNK
     Route: 065
  2. NEFOPAM [Concomitant]
     Active Substance: NEFOPAM
     Indication: GASTROINTESTINAL SURGERY
     Dosage: UNK
     Route: 065
  3. KETOPROFEN. [Concomitant]
     Active Substance: KETOPROFEN
     Indication: GASTROINTESTINAL SURGERY
     Dosage: UNK
     Route: 065
  4. TRAMADOL. [Concomitant]
     Active Substance: TRAMADOL
     Indication: GASTROINTESTINAL SURGERY
     Dosage: UNK
     Route: 065
  5. ENOXAPARIN SODIUM. [Suspect]
     Active Substance: ENOXAPARIN SODIUM
     Indication: ANTICOAGULANT THERAPY
     Dosage: UNK
     Route: 065
  6. ENOXAPARIN SODIUM. [Suspect]
     Active Substance: ENOXAPARIN SODIUM
     Indication: GASTROINTESTINAL SURGERY
  7. PHLOROGLUCINOL [Concomitant]
     Active Substance: PHLOROGLUCINOL
     Indication: GASTROINTESTINAL SURGERY
     Dosage: UNK
     Route: 065

REACTIONS (4)
  - Rash [Unknown]
  - Exfoliative rash [Unknown]
  - Acute generalised exanthematous pustulosis [Unknown]
  - Pyrexia [Unknown]
